FAERS Safety Report 7162441-1 (Version None)
Quarter: 2010Q4

REPORT INFORMATION
  Report Type: 
  Country: None (occurrence: None)
  Receive Date: 20101215
  Receipt Date: 20091102
  Transmission Date: 20110411
  Serious: Yes (Other)
  Sender: FDA-Public Use
  Company Number: FI-PFIZER INC-2009291575

PATIENT
  Age: 66 Year
  Sex: Male

DRUGS (10)
  1. LYRICA [Suspect]
     Indication: NEURALGIA
     Dosage: 150 MG, 2X/DAY
     Dates: start: 20090901
  2. LYRICA [Suspect]
     Dosage: 75+150MG DAILY
     Dates: start: 20090901, end: 20090901
  3. LYRICA [Suspect]
     Dosage: UNK
     Dates: start: 20090501, end: 20090901
  4. INSULIN DETEMIR [Concomitant]
  5. INSULIN GLULISINE [Concomitant]
  6. METFORMIN [Concomitant]
  7. ASPIRIN [Concomitant]
  8. CRESTOR [Concomitant]
  9. CARDIOL [Concomitant]
  10. ISANGINA [Concomitant]

REACTIONS (2)
  - AMNESIA [None]
  - SLEEP ATTACKS [None]
